FAERS Safety Report 5733911-5 (Version None)
Quarter: 2008Q2

REPORT INFORMATION
  Report Type: 
  Country: None (occurrence: None)
  Receive Date: 20080509
  Receipt Date: 20080429
  Transmission Date: 20081010
  Serious: Yes (Life-Threatening, Hospitalization)
  Sender: FDA-Public Use
  Company Number: FR-PFIZER INC-2008037343

PATIENT
  Sex: Male

DRUGS (6)
  1. ATORVASTATIN CALCIUM [Suspect]
     Route: 048
  2. PREVISCAN [Suspect]
     Route: 048
  3. CORDARONE [Suspect]
     Route: 048
  4. TANAKAN [Suspect]
     Route: 048
  5. MEDIATENSYL [Concomitant]
     Route: 048
  6. ATARAX [Concomitant]
     Route: 048

REACTIONS (3)
  - ABDOMINAL WALL HAEMATOMA [None]
  - ANAEMIA [None]
  - MUSCLE HAEMORRHAGE [None]
